FAERS Safety Report 5223640-9 (Version None)
Quarter: 2007Q1

REPORT INFORMATION
  Report Type: 
  Country: None (occurrence: None)
  Receive Date: 20070130
  Receipt Date: 20070115
  Transmission Date: 20070707
  Serious: Yes (Hospitalization)
  Sender: FDA-Public Use
  Company Number: US-KINGPHARMUSA00001-K200700029

PATIENT

DRUGS (7)
  1. ALTACE [Suspect]
     Indication: ESSENTIAL HYPERTENSION
     Dosage: 5 MG, QD
     Route: 048
     Dates: start: 20060923, end: 20060924
  2. KARDEGIC                           /00002703/ [Concomitant]
     Indication: EMBOLISM VENOUS
     Dosage: 75 MG, QD
     Route: 048
     Dates: start: 20060830
  3. MEDIATENSYL                        /00631801/ [Concomitant]
     Indication: ESSENTIAL HYPERTENSION
     Dosage: 180 MG, QD
     Route: 048
     Dates: start: 20060830, end: 20060921
  4. DOLIPRANE [Concomitant]
     Dosage: 4 G, QD
     Route: 048
     Dates: end: 20060918
  5. SKENAN [Concomitant]
     Dosage: 120 MG, QD
     Route: 048
     Dates: start: 20060830
  6. PRAVASTATIN [Concomitant]
     Indication: HYPERCHOLESTEROLAEMIA
     Dosage: 20 MG, QD
     Route: 048
     Dates: start: 20060830, end: 20060918
  7. PLAVIX [Concomitant]

REACTIONS (2)
  - ARTERIAL DISORDER [None]
  - HYPOTENSION [None]
